FAERS Safety Report 5338497-5 (Version None)
Quarter: 2007Q2

REPORT INFORMATION
  Report Type: 
  Country: None (occurrence: None)
  Receive Date: 20070405
  Receipt Date: 20061117
  Transmission Date: 20071010
  Serious: No
  Sender: FDA-Public Use
  Company Number: US200611002136

PATIENT
  Age: 51 Year
  Sex: Female

DRUGS (2)
  1. CYMBALTA [Suspect]
     Indication: DEPRESSION
     Dosage: 60 MG, ORAL
     Route: 048
     Dates: start: 20061002
  2. ATOMOXETINE HYDROCHLORIDE (TOMOXETINE HYDROCHLORIDE) [Concomitant]

REACTIONS (3)
  - ALOPECIA [None]
  - ALOPECIA EFFLUVIUM [None]
  - SOMNOLENCE [None]
